FAERS Safety Report 4519700-8 (Version None)
Quarter: 2004Q4

REPORT INFORMATION
  Report Type: 
  Country: None (occurrence: None)
  Receive Date: 20041206
  Receipt Date: 20041125
  Transmission Date: 20050328
  Serious: Yes (Other)
  Sender: FDA-Public Use
  Company Number: PHFR2004GB04389

PATIENT
  Sex: Male

DRUGS (2)
  1. GLEEVEC [Suspect]
  2. CHEMOTHERAPEUTICS,OTHER [Concomitant]

REACTIONS (2)
  - ENCEPHALITIS [None]
  - FUNGUS CSF TEST POSITIVE [None]
